FAERS Safety Report 17413722 (Version 1)
Quarter: 2020Q1

REPORT INFORMATION
  Report Type: Report from Study
  Country: IT (occurrence: IT)
  Receive Date: 20200213
  Receipt Date: 20200213
  Transmission Date: 20200409
  Serious: Yes (Other)
  Sender: FDA-Public Use
  Company Number: PHHY2016CH078011

PATIENT
  Age: 28 Year
  Sex: Female

DRUGS (1)
  1. SIGNIFOR [Suspect]
     Active Substance: PASIREOTIDE DIASPARTATE
     Indication: PITUITARY-DEPENDENT CUSHING^S SYNDROME
     Dosage: UNK
     Route: 058
     Dates: start: 20150702

REACTIONS (2)
  - Cortisol free urine increased [Recovered/Resolved]
  - Cortisol free urine increased [Recovered/Resolved]

NARRATIVE: CASE EVENT DATE: 20150802
